FAERS Safety Report 22058175 (Version 1)
Quarter: 2023Q1

REPORT INFORMATION
  Report Type: Spontaneous
  Country: CN (occurrence: CN)
  Receive Date: 20230303
  Receipt Date: 20230303
  Transmission Date: 20230417
  Serious: Yes (Hospitalization, Other)
  Sender: FDA-Public Use
  Company Number: CN-AUROBINDO-AUR-APL-2023-008545

PATIENT
  Age: 95 Year
  Sex: Male

DRUGS (6)
  1. PANTOPRAZOLE SODIUM [Suspect]
     Active Substance: PANTOPRAZOLE SODIUM
     Indication: Antacid therapy
     Dosage: 40 MILLIGRAM, ONCE A DAY, 13 DAYS
     Route: 048
     Dates: start: 20230105, end: 20230118
  2. PIPERACILLIN SODIUM\TAZOBACTAM SODIUM [Suspect]
     Active Substance: PIPERACILLIN SODIUM\TAZOBACTAM SODIUM
     Indication: Pneumonia
     Dosage: 4.5 GRAM, 3 TIMES A DAY, 3 DAYS
     Route: 042
     Dates: start: 20230105, end: 20230108
  3. PIPERACILLIN SODIUM\TAZOBACTAM SODIUM [Suspect]
     Active Substance: PIPERACILLIN SODIUM\TAZOBACTAM SODIUM
     Dosage: 4.5 GRAM, TWO TIMES A DAY, 4 DAYS
     Route: 042
     Dates: start: 20230109, end: 20230113
  4. AMBROXOL HYDROCHLORIDE [Suspect]
     Active Substance: AMBROXOL HYDROCHLORIDE
     Indication: Increased viscosity of bronchial secretion
     Dosage: 30 MILLIGRAM, TWO TIMES A DAY, 14 DAYS
     Route: 065
     Dates: start: 20230105, end: 20230119
  5. NIRMATRELVIR\RITONAVIR [Suspect]
     Active Substance: NIRMATRELVIR\RITONAVIR
     Indication: Product used for unknown indication
     Dosage: 300/100 MILLIGRAM, TWO TIMES A DAY, PATIENT TOOK IT ONCE ON  STOPPING DATE
     Route: 048
     Dates: end: 20230110
  6. SODIUM CHLORIDE [Concomitant]
     Active Substance: SODIUM CHLORIDE
     Indication: Product used for unknown indication
     Dosage: UNK
     Route: 065

REACTIONS (3)
  - Pneumonia [Recovering/Resolving]
  - Hepatic enzyme increased [Recovering/Resolving]
  - Viral infection [Recovering/Resolving]

NARRATIVE: CASE EVENT DATE: 20230105
